FAERS Safety Report 19544188 (Version 1)
Quarter: 2021Q3

REPORT INFORMATION
  Report Type: Spontaneous
  Country: US (occurrence: US)
  Receive Date: 20210713
  Receipt Date: 20210713
  Transmission Date: 20211014
  Serious: No
  Sender: FDA-Public Use
  Company Number: US-ORGANON-O2107USA000291

PATIENT
  Sex: Female

DRUGS (1)
  1. ETONOGESTREL (+) ETHINYL ESTRADIOL [Suspect]
     Active Substance: ETHINYL ESTRADIOL\ETONOGESTREL
     Indication: MENSTRUAL CYCLE MANAGEMENT
     Dosage: VAGINAL RING, 0.12MG/0.015MG, 1 (3 RINGS)
     Route: 067
     Dates: start: 2020

REACTIONS (6)
  - Product storage error [Unknown]
  - Drug effective for unapproved indication [Unknown]
  - Weight increased [Unknown]
  - Device temperature issue [Unknown]
  - Poor quality device used [Unknown]
  - Product use in unapproved indication [Unknown]

NARRATIVE: CASE EVENT DATE: 2020
